FAERS Safety Report 21673094 (Version 1)
Quarter: 2022Q4

REPORT INFORMATION
  Report Type: Spontaneous
  Country: US (occurrence: US)
  Receive Date: 20221202
  Receipt Date: 20221202
  Transmission Date: 20230113
  Serious: Yes (Other)
  Sender: FDA-Public Use
  Company Number: US-002147023-NVSC2022US278229

PATIENT
  Sex: Male

DRUGS (1)
  1. TASIGNA [Suspect]
     Active Substance: NILOTINIB
     Indication: Chronic myeloid leukaemia
     Dosage: UNK
     Route: 065

REACTIONS (8)
  - Retinal haemorrhage [Unknown]
  - Neuropathy peripheral [Unknown]
  - Trismus [Unknown]
  - Somnolence [Unknown]
  - Stress [Unknown]
  - Fatigue [Unknown]
  - Rash [Unknown]
  - Muscle spasms [Unknown]
